FAERS Safety Report 5483849-6 (Version None)
Quarter: 2007Q4

REPORT INFORMATION
  Report Type: 
  Country: None (occurrence: None)
  Receive Date: 20071012
  Receipt Date: 20071009
  Transmission Date: 20080405
  Serious: Yes (Life-Threatening, Hospitalization)
  Sender: FDA-Public Use
  Company Number: NO-ASTRAZENECA-2007SE05418

PATIENT
  Age: 3 Year
  Sex: Female
  Weight: 14 kg

DRUGS (5)
  1. PROPOFOL [Suspect]
     Indication: STUPOR
     Dosage: TIVA WITH PROPOFOL WAS GIVEN I.V. CONTINUOUS UNTIL SUBSTITUTED WITH KETALAR
     Route: 042
     Dates: start: 20070427, end: 20070427
  2. RAPIFEN [Suspect]
     Indication: ANALGESIA
     Dosage: WAS GIVEN IN SEVERAL BOLUS DOSIS
     Dates: start: 20070427, end: 20070427
  3. NORCURON [Suspect]
     Indication: INTUBATION
     Dosage: ONE BOLUS WAS GIVEN
     Dates: start: 20070427, end: 20070427
  4. SALIDEX [Concomitant]
  5. PARACET [Concomitant]
     Indication: ANALGESIA
     Route: 054
     Dates: start: 20070427, end: 20070427

REACTIONS (1)
  - AIRWAY COMPLICATION OF ANAESTHESIA [None]
